FAERS Safety Report 14399390 (Version 1)
Quarter: 2018Q1

REPORT INFORMATION
  Report Type: Spontaneous
  Country: US (occurrence: US)
  Receive Date: 20180117
  Receipt Date: 20180117
  Transmission Date: 20180509
  Serious: No
  Sender: FDA-Public Use
  Company Number: US-JNJFOC-20171137024

PATIENT
  Age: 33 Year
  Sex: Female

DRUGS (2)
  1. SIMPONI [Suspect]
     Active Substance: GOLIMUMAB
     Indication: RHEUMATOID ARTHRITIS
     Dosage: 5-6 MONTHS AGO
     Route: 058
     Dates: start: 2017
  2. SIMPONI [Suspect]
     Active Substance: GOLIMUMAB
     Indication: AUTOIMMUNE DISORDER
     Dosage: 5-6 MONTHS AGO
     Route: 058
     Dates: start: 2017

REACTIONS (2)
  - Product storage error [Unknown]
  - Drug dose omission [Unknown]

NARRATIVE: CASE EVENT DATE: 201711
